FAERS Safety Report 5446375-6 (Version None)
Quarter: 2007Q3

REPORT INFORMATION
  Report Type: 
  Country: None (occurrence: None)
  Receive Date: 20070907
  Receipt Date: 20070903
  Transmission Date: 20080115
  Serious: Yes (Hospitalization)
  Sender: FDA-Public Use
  Company Number: B0485930A

PATIENT
  Age: 82 Year
  Sex: Female

DRUGS (2)
  1. CLAMOXYL [Suspect]
     Indication: DENTAL CARE
     Dosage: 3G SINGLE DOSE
     Route: 065
     Dates: start: 20060601, end: 20060601
  2. TENORMIN [Concomitant]
     Indication: AORTIC VALVE REPAIR

REACTIONS (4)
  - ANGIOEDEMA [None]
  - DIARRHOEA [None]
  - LIP OEDEMA [None]
  - URTICARIA [None]
